FAERS Safety Report 11054422 (Version 1)
Quarter: 2015Q2

REPORT INFORMATION
  Report Type: Spontaneous
  Country: DE (occurrence: DE)
  Receive Date: 20150422
  Receipt Date: 20150422
  Transmission Date: 20150821
  Serious: Yes (Death)
  Sender: FDA-Public Use
  Company Number: DE-TEVA-556021GER

PATIENT
  Age: 25 Year
  Sex: Male

DRUGS (8)
  1. LEVAMISOLE [Suspect]
     Active Substance: LEVAMISOLE
     Route: 050
  2. PAPAVERINE [Concomitant]
     Active Substance: PAPAVERINE
     Route: 065
  3. CHLORPROTHIXENE [Concomitant]
     Active Substance: CHLORPROTHIXENE
     Route: 065
  4. NOSCAPINE [Concomitant]
     Active Substance: NOSCAPINE
     Route: 065
  5. METHADONE [Concomitant]
     Active Substance: METHADONE HYDROCHLORIDE
     Route: 065
  6. CAFFEINE. [Concomitant]
     Active Substance: CAFFEINE
     Route: 065
  7. DILTIAZEM [Suspect]
     Active Substance: DILTIAZEM
     Route: 050
  8. DIAZEPAM. [Concomitant]
     Active Substance: DIAZEPAM
     Route: 065

REACTIONS (1)
  - Death [Fatal]
